FAERS Safety Report 15928312 (Version 9)
Quarter: 2019Q3

REPORT INFORMATION
  Report Type: Spontaneous
  Country: PL (occurrence: PL)
  Receive Date: 20190206
  Receipt Date: 20190913
  Transmission Date: 20191004
  Serious: Yes (Hospitalization, Other)
  Sender: FDA-Public Use
  Company Number: PL-SA-2019SA031510

PATIENT
  Age: 47 Year
  Sex: Female

DRUGS (15)
  1. HYDROXYZINE [Suspect]
     Active Substance: HYDROXYZINE HYDROCHLORIDE
     Indication: DERMATITIS ATOPIC
     Dosage: 10 MG/ML
     Route: 048
  2. HYDROXYZINE [Suspect]
     Active Substance: HYDROXYZINE HYDROCHLORIDE
     Indication: ALLERGY TEST
     Dosage: ORAL HYDROXYZINE PROVOCATION TESTS
     Route: 048
  3. DOXEPIN [DOXEPIN HYDROCHLORIDE] [Suspect]
     Active Substance: DOXEPIN HYDROCHLORIDE
     Indication: PRURITUS
  4. CETIRIZINE HYDROCHLORIDE. [Suspect]
     Active Substance: CETIRIZINE HYDROCHLORIDE
     Indication: DRUG PROVOCATION TEST
     Dosage: 1 MG/ML
     Route: 048
  5. DIPHENHYDRAMINE. [Suspect]
     Active Substance: DIPHENHYDRAMINE
     Indication: DRUG PROVOCATION TEST
     Dosage: 12.5 MG/5ML
     Route: 048
  6. FEXOFENADINE HYDROCHLORIDE. [Suspect]
     Active Substance: FEXOFENADINE HYDROCHLORIDE
     Indication: DRUG PROVOCATION TEST
  7. HYDROXYZINE [Suspect]
     Active Substance: HYDROXYZINE HYDROCHLORIDE
     Indication: ANGIOEDEMA
     Dosage: 2 MG
     Route: 048
  8. LORATADINE. [Suspect]
     Active Substance: LORATADINE
     Indication: DRUG PROVOCATION TEST
     Dosage: 5 MG/ML
     Route: 048
  9. FEXOFENADINE HYDROCHLORIDE. [Suspect]
     Active Substance: FEXOFENADINE HYDROCHLORIDE
     Indication: RHINITIS ALLERGIC
     Dosage: 30 MG/ML
     Route: 048
  10. DOXEPIN [DOXEPIN HYDROCHLORIDE] [Suspect]
     Active Substance: DOXEPIN HYDROCHLORIDE
     Indication: DRUG PROVOCATION TEST
     Dosage: 10 MG/ML
     Route: 048
  11. LEVOCETIRIZINE [Suspect]
     Active Substance: LEVOCETIRIZINE
     Indication: DRUG PROVOCATION TEST
     Dosage: 2.5 MG/ML
     Route: 048
  12. HYDROXYZINE [Suspect]
     Active Substance: HYDROXYZINE HYDROCHLORIDE
     Indication: DRUG PROVOCATION TEST
     Dosage: 25 MG
     Route: 048
  13. HYDROXYZINE [Suspect]
     Active Substance: HYDROXYZINE HYDROCHLORIDE
     Indication: RHINITIS ALLERGIC
     Dosage: 4 MG
     Route: 048
  14. HYDROXYZINE [Suspect]
     Active Substance: HYDROXYZINE HYDROCHLORIDE
     Dosage: 1 ML (2 MG)
  15. FEXOFENADINE HYDROCHLORIDE. [Suspect]
     Active Substance: FEXOFENADINE HYDROCHLORIDE
     Indication: PRURITUS

REACTIONS (10)
  - Pruritus generalised [Recovering/Resolving]
  - Bronchospasm [Recovering/Resolving]
  - Anaphylactic reaction [Recovering/Resolving]
  - Peripheral swelling [Recovering/Resolving]
  - Cough [Recovered/Resolved]
  - Eosinophilia [Recovering/Resolving]
  - Dyspnoea [Recovered/Resolved]
  - Dyspnoea [Recovering/Resolving]
  - Nasal congestion [Recovering/Resolving]
  - Pruritus [Recovered/Resolved]
